FAERS Safety Report 8435583-8 (Version None)
Quarter: 2012Q2

REPORT INFORMATION
  Report Type: 
  Country: None (occurrence: None)
  Receive Date: 20120614
  Receipt Date: 20120606
  Transmission Date: 20120825
  Serious: Yes (Death, Other)
  Sender: FDA-Public Use
  Company Number: JP-ASTRAZENECA-2012SE27860

PATIENT
  Age: 71 Year
  Sex: Male
  Weight: 42.2 kg

DRUGS (10)
  1. SEROQUEL [Suspect]
     Indication: DELIRIUM
     Route: 048
     Dates: start: 20120404, end: 20120416
  2. SEROQUEL [Suspect]
     Route: 048
     Dates: start: 20120419, end: 20120425
  3. SEROQUEL [Suspect]
     Route: 048
     Dates: start: 20120419, end: 20120425
  4. SEROQUEL [Suspect]
     Indication: INSOMNIA
     Route: 048
     Dates: start: 20120404, end: 20120416
  5. URSO 250 [Concomitant]
     Indication: HEPATIC FUNCTION ABNORMAL
     Dates: start: 20120412, end: 20120425
  6. FUNGIZONE [Concomitant]
     Indication: FUNGAL INFECTION
     Dates: start: 20120410, end: 20120415
  7. SERTRALINE HYDROCHLORIDE [Concomitant]
     Indication: DEPRESSIVE SYMPTOM
     Route: 065
     Dates: start: 20120420, end: 20120425
  8. RISPERDAL [Concomitant]
     Indication: DELIRIUM
     Route: 048
     Dates: start: 20120418, end: 20120425
  9. GASMOTIN [Concomitant]
     Indication: HEPATIC FUNCTION ABNORMAL
     Dates: start: 20120410, end: 20120412
  10. DEPAS [Concomitant]
     Indication: INSOMNIA
     Route: 065
     Dates: start: 20120404, end: 20120425

REACTIONS (3)
  - HYPOGLYCAEMIA [None]
  - OFF LABEL USE [None]
  - PNEUMONIA ASPIRATION [None]
